FAERS Safety Report 9635075 (Version 1)
Quarter: 2013Q4

REPORT INFORMATION
  Report Type: Spontaneous
  Country: JP (occurrence: None)
  Receive Date: 20131017
  Receipt Date: 20131017
  Transmission Date: 20140711
  Serious: Yes (Hospitalization, Other)
  Sender: FDA-Public Use
  Company Number: CO-OR-JP-2013-145

PATIENT
  Age: 48 Year
  Sex: Male

DRUGS (8)
  1. PREDNISOLONE (PREDNISOLONE) [Suspect]
     Indication: IMMUNOSUPPRESSION
  2. CYCLOSPORINE [Suspect]
     Indication: IMMUNOSUPPRESSION
  3. MYCOPHENOLATE MOFETIL [Suspect]
     Indication: IMMUNOSUPPRESSION
  4. MIZORIBINE [Suspect]
     Indication: IMMUNOSUPPRESSION
  5. UNSPECIFIED INGREDIENTS [Suspect]
     Indication: IMMUNOSUPPRESSION
  6. TACROLIMUS [Suspect]
     Indication: PROPHYLAXIS AGAINST TRANSPLANT REJECTION
  7. BENZBROMARONE [Suspect]
     Indication: HYPERURICAEMIA
  8. FEBUXOSTAT [Suspect]
     Indication: HYPERURICAEMIA

REACTIONS (2)
  - Renal failure acute [None]
  - Acidosis hyperchloraemic [None]
